FAERS Safety Report 24409560 (Version 1)
Quarter: 2024Q4

REPORT INFORMATION
  Report Type: Report from Study
  Country: BR (occurrence: BR)
  Receive Date: 20241008
  Receipt Date: 20241008
  Transmission Date: 20250115
  Serious: Yes (Other)
  Sender: JOHNSON AND JOHNSON
  Company Number: BR-JNJFOC-20241004150

PATIENT
  Age: 67 Year
  Sex: Female
  Weight: 102 kg

DRUGS (1)
  1. INFLIXIMAB [Suspect]
     Active Substance: INFLIXIMAB
     Indication: Rheumatoid arthritis
     Dosage: INFUSION EVERY 2 MONTHS.
     Route: 041

REACTIONS (3)
  - Erysipelas [Unknown]
  - Peripheral vascular disorder [Unknown]
  - Off label use [Unknown]
